FAERS Safety Report 9380410 (Version 1)
Quarter: 2013Q2

REPORT INFORMATION
  Report Type: Spontaneous
  Country: US (occurrence: None)
  Receive Date: 20130628
  Receipt Date: 20130628
  Transmission Date: 20140414
  Serious: Yes (Hospitalization)
  Sender: FDA-Public Use
  Company Number: ACO_36716_2013

PATIENT
  Age: 47 Year
  Sex: Female

DRUGS (1)
  1. TIZANIDINE (TIZANIDINE) [Suspect]
     Indication: PRODUCT USED FOR UNKNOWN INDICATION

REACTIONS (8)
  - Renal tubular disorder [None]
  - Metabolic acidosis [None]
  - Unresponsive to stimuli [None]
  - Mental impairment [None]
  - Sinus tachycardia [None]
  - Electrocardiogram QT prolonged [None]
  - Hypokalaemia [None]
  - Blood sodium increased [None]
